FAERS Safety Report 9235512 (Version 1)
Quarter: 2013Q1

REPORT INFORMATION
  Report Type: Spontaneous
  Country: US (occurrence: None)
  Receive Date: 20121031
  Receipt Date: 20121031
  Transmission Date: 20140127
  Serious: No
  Sender: FDA-Public Use
  Company Number: PHEH2012US011601

PATIENT
  Age: 40 Year
  Sex: Female

DRUGS (11)
  1. GILENYA (FTY) CAPSULE, 0.5MG [Suspect]
     Indication: MULTIPLE SCLEROSIS
     Route: 048
     Dates: start: 201107
  2. PRAVACHOL (PRAVASTATIN SODIUM), 10MG [Concomitant]
  3. XANAX (ALPRAZOLAM) 1MG [Concomitant]
  4. AMBIEN (ZOLPIDEM TARTRATE) 10MG [Concomitant]
  5. ADDERALL (AMFETAMINE ASPARTATE, AMFETAMINE SULFATE, DEXAMFETAMINE SACCHRATE, DEXAMFETAMINE SULFATE) 10MG [Concomitant]
  6. DIFLUCAN (FLUCONAZOLE) 150MG [Concomitant]
  7. CEFDINIR (CEFDINIR), 300MG [Concomitant]
  8. MACROBID (NITROFURANTOIN) 100MG [Concomitant]
  9. TRAZODONE (TRAZODONE) 150MG [Concomitant]
  10. ROXICODONE (OXYCODONE HYDROCHLORIDE) 30MG [Concomitant]
  11. RELISTOR (METHYLNALTREXONE BROMIDE) [Concomitant]

REACTIONS (5)
  - Amnesia [None]
  - Fall [None]
  - Bronchitis [None]
  - Urinary tract infection [None]
  - Chest pain [None]
